FAERS Safety Report 9013251 (Version 2)
Quarter: 2013Q1

REPORT INFORMATION
  Report Type: Report from Study
  Country: CA (occurrence: CA)
  Receive Date: 20130114
  Receipt Date: 20130201
  Transmission Date: 20140127
  Serious: Yes (Death, Other)
  Sender: FDA-Public Use
  Company Number: PHHY2013CA002841

PATIENT
  Sex: Female

DRUGS (2)
  1. CLOZARIL [Suspect]
     Indication: SCHIZOPHRENIA
     Dosage: UNK
     Route: 048
     Dates: start: 20000801
  2. CLOZARIL [Suspect]
     Dosage: 100 MG BID AND 300 MG QHS
     Route: 048
     Dates: start: 20121214, end: 20130108

REACTIONS (1)
  - Oesophageal cancer metastatic [Fatal]
